FAERS Safety Report 11569323 (Version 1)
Quarter: 2015Q3

REPORT INFORMATION
  Report Type: Spontaneous
  Country: US (occurrence: None)
  Receive Date: 20150928
  Receipt Date: 20150928
  Transmission Date: 20151125
  Serious: Yes (Hospitalization)
  Sender: FDA-Public Use
  Company Number: None

PATIENT
  Age: 58 Year
  Sex: Female
  Weight: 52.62 kg

DRUGS (40)
  1. STRONTIUM [Concomitant]
     Active Substance: STRONTIUM
  2. E-7 [Concomitant]
  3. BIOTIN [Concomitant]
     Active Substance: BIOTIN
  4. ZINC [Concomitant]
     Active Substance: ZINC\ZINC CHLORIDE
  5. VITAMIN WITH CALCIUM [Concomitant]
  6. VITAMIN D3 [Concomitant]
     Active Substance: CHOLECALCIFEROL
  7. IODINE [Concomitant]
     Active Substance: IODINE
  8. VITAMIN D-1,000 [Concomitant]
  9. NIACINAMIDE [Concomitant]
     Active Substance: NIACINAMIDE
  10. B6 [Concomitant]
     Active Substance: PYRIDOXINE HYDROCHLORIDE
  11. MOLYBDENUM [Concomitant]
     Active Substance: MOLYBDENUM
  12. RALOXIFENE HCL 60 MG CAMBER [Suspect]
     Active Substance: RALOXIFENE
     Indication: BONE DENSITY ABNORMAL
     Route: 048
     Dates: start: 20150707, end: 20150720
  13. COMPLEX C ULTIMATE OMEGA D-3 [Concomitant]
  14. CO-Q 10 [Concomitant]
  15. VITAMIN A [Concomitant]
     Active Substance: VITAMIN A
  16. FOLATE [Concomitant]
     Active Substance: FOLATE SODIUM
  17. POTASSIUM [Concomitant]
     Active Substance: POTASSIUM
  18. SCHISANDRA BERRY [Concomitant]
  19. ADVIL COD AND SINUS [Concomitant]
  20. BABY ASPIRIN [Concomitant]
     Active Substance: ASPIRIN
  21. VITAMIN B12 [Concomitant]
     Active Substance: CYANOCOBALAMIN
  22. CALCIUM [Concomitant]
     Active Substance: CALCIUM
  23. B-1 [Concomitant]
  24. CHROMIUM [Concomitant]
     Active Substance: CHROMIC CHLORIDE\CHROMIUM
  25. ORGANIC KALE LEAF [Concomitant]
  26. VITAMIN K [Concomitant]
     Active Substance: PHYTONADIONE
  27. VANADIUM. [Concomitant]
     Active Substance: VANADIUM
  28. PANTOTHENIC ACID [Concomitant]
     Active Substance: PANTOTHENIC ACID
  29. COPPER [Concomitant]
     Active Substance: COPPER
  30. ORGANIC BROCCOLI [Concomitant]
  31. GREEN TEA LEAF EXTRACT [Concomitant]
  32. MULTIVITAMINS [Concomitant]
     Active Substance: VITAMINS
  33. VITAMINS [Concomitant]
     Active Substance: VITAMINS
  34. MAGNESIUM [Concomitant]
     Active Substance: MAGNESIUM
  35. VITAMN C [Concomitant]
  36. SELENIUM [Concomitant]
     Active Substance: SELENIUM
  37. MANGANESE [Concomitant]
     Active Substance: MANGANESE\MANGANESE CHLORIDE
  38. WILD BLUEBERRY [Concomitant]
  39. BONIVA [Suspect]
     Active Substance: IBANDRONATE SODIUM
     Indication: PRODUCT SUBSTITUTION ISSUE
     Dosage: 1 PILL
     Route: 048
  40. B2 [Concomitant]

REACTIONS (4)
  - Burning sensation [None]
  - Influenza like illness [None]
  - Muscle spasms [None]
  - Drug interaction [None]

NARRATIVE: CASE EVENT DATE: 20150720
